FAERS Safety Report 6549625-8 (Version None)
Quarter: 2010Q1

REPORT INFORMATION
  Report Type: 
  Country: None (occurrence: None)
  Receive Date: 20100125
  Receipt Date: 20091214
  Transmission Date: 20100710
  Serious: Yes (Other)
  Sender: FDA-Public Use
  Company Number: US-ASTRAZENECA-2009SE19510

PATIENT
  Age: 23044 Day
  Sex: Female
  Weight: 50.8 kg

DRUGS (1)
  1. PRILOSEC OTC [Suspect]
     Indication: GASTRITIS
     Route: 048
     Dates: start: 20091007, end: 20091007

REACTIONS (4)
  - ACCOMMODATION DISORDER [None]
  - BLINDNESS TRANSIENT [None]
  - VISUAL ACUITY REDUCED [None]
  - WRONG TECHNIQUE IN DRUG USAGE PROCESS [None]
